FAERS Safety Report 10983196 (Version 2)
Quarter: 2015Q2

REPORT INFORMATION
  Report Type: Report from Study
  Country: AU (occurrence: AU)
  Receive Date: 20150403
  Receipt Date: 20150531
  Transmission Date: 20150821
  Serious: Yes (Hospitalization)
  Sender: FDA-Public Use
  Company Number: PHHY2015AU037331

PATIENT
  Sex: Female

DRUGS (3)
  1. CLOZARIL [Suspect]
     Active Substance: CLOZAPINE
     Dosage: EVERY SECOND OR THIRD DAY
     Route: 048
     Dates: end: 20150304
  2. CLOZARIL [Suspect]
     Active Substance: CLOZAPINE
     Indication: SCHIZOPHRENIA
     Dosage: UNK
     Route: 048
     Dates: start: 20060707
  3. CLOZARIL [Suspect]
     Active Substance: CLOZAPINE
     Dosage: 550 OT
     Route: 048

REACTIONS (1)
  - Psychotic disorder [Unknown]
